FAERS Safety Report 21332463 (Version 5)
Quarter: 2023Q2

REPORT INFORMATION
  Report Type: Report from Study
  Country: CA (occurrence: CA)
  Receive Date: 20220914
  Receipt Date: 20230626
  Transmission Date: 20230722
  Serious: Yes (Other)
  Sender: FDA-Public Use
  Company Number: CA-NOVARTISPH-NVSC2022CA204762

PATIENT
  Sex: Female

DRUGS (2)
  1. MAYZENT [Suspect]
     Active Substance: SIPONIMOD
     Indication: Secondary progressive multiple sclerosis
     Dosage: UNK
     Route: 048
     Dates: start: 20220902
  2. MAYZENT [Suspect]
     Active Substance: SIPONIMOD
     Dosage: 2 MG
     Route: 065
     Dates: start: 20220907

REACTIONS (17)
  - Mental impairment [Unknown]
  - Bradycardia [Unknown]
  - Central nervous system lesion [Unknown]
  - Speech disorder [Unknown]
  - Facial pain [Unknown]
  - Trigeminal neuralgia [Unknown]
  - Amnesia [Unknown]
  - Gait disturbance [Unknown]
  - Fall [Unknown]
  - Head injury [Unknown]
  - Pollakiuria [Unknown]
  - Confusional state [Unknown]
  - Limb injury [Unknown]
  - Monocyte count decreased [Unknown]
  - Lymphocyte count decreased [Unknown]
  - Dizziness [Unknown]
  - Peripheral swelling [Unknown]

NARRATIVE: CASE EVENT DATE: 20220909
